FAERS Safety Report 24548530 (Version 1)
Quarter: 2024Q4

REPORT INFORMATION
  Report Type: Spontaneous
  Country: US (occurrence: None)
  Receive Date: 20241023
  Receipt Date: 20241023
  Transmission Date: 20250115
  Serious: Yes (Hospitalization)
  Sender: Public
  Company Number: None

PATIENT
  Age: 60 Year
  Sex: Male
  Weight: 83 kg

DRUGS (1)
  1. EMPAGLIFLOZIN\METFORMIN HYDROCHLORIDE [Suspect]
     Active Substance: EMPAGLIFLOZIN\METFORMIN HYDROCHLORIDE
     Indication: Diabetes mellitus
     Dates: start: 20240612, end: 20240712

REACTIONS (8)
  - Tremor [None]
  - Dizziness [None]
  - Vomiting [None]
  - Acidosis [None]
  - Anion gap increased [None]
  - Blood lactic acid [None]
  - Supraventricular tachycardia [None]
  - Blood ethanol increased [None]

NARRATIVE: CASE EVENT DATE: 20240709
